FAERS Safety Report 6301587-4 (Version None)
Quarter: 2009Q3

REPORT INFORMATION
  Report Type: 
  Country: None (occurrence: None)
  Receive Date: 20090807
  Receipt Date: 20090803
  Transmission Date: 20100115
  Serious: Yes (Other)
  Sender: FDA-Public Use
  Company Number: GB-ROXANE LABORATORIES, INC.-2009-RO-00772RO

PATIENT
  Age: 66 Year
  Sex: Female

DRUGS (9)
  1. FUROSEMIDE [Suspect]
     Indication: JOINT SWELLING
     Dosage: 40 MG
  2. AMLODIPINE [Suspect]
  3. SIMVASTATIN [Suspect]
  4. ASPIRIN [Suspect]
  5. BENDROFLUMETHIAZIDE [Suspect]
     Indication: HYPERTENSION
     Dosage: 2.5 MG
  6. ACETAMINOPHEN W/ CODEINE [Suspect]
  7. ATENOLOL [Suspect]
  8. POTASSIUM CHLORIDE [Concomitant]
     Indication: HYPOKALAEMIA
  9. REHYDRATION [Concomitant]
     Indication: DEHYDRATION
     Route: 042

REACTIONS (5)
  - DEHYDRATION [None]
  - ELECTROCARDIOGRAM ABNORMAL [None]
  - HYPOKALAEMIA [None]
  - HYPONATRAEMIA [None]
  - METABOLIC ALKALOSIS [None]
